FAERS Safety Report 15168866 (Version 1)
Quarter: 2018Q3

REPORT INFORMATION
  Report Type: Spontaneous
  Country: DE (occurrence: DE)
  Receive Date: 20180720
  Receipt Date: 20180720
  Transmission Date: 20181010
  Serious: Yes (Other)
  Sender: FDA-Public Use
  Company Number: DE-AUROBINDO-AUR-APL-2018-032999

PATIENT
  Sex: Female
  Weight: 77 kg

DRUGS (2)
  1. VENLAFAXINE 75MG [Suspect]
     Active Substance: VENLAFAXINE HYDROCHLORIDE
     Indication: PRODUCT USED FOR UNKNOWN INDICATION
     Dosage: UNK
     Route: 065
  2. MOXIFLOXACIN ABZ [Suspect]
     Active Substance: MOXIFLOXACIN HYDROCHLORIDE
     Indication: OTITIS EXTERNA
     Dosage: 400 MILLIGRAM DAILY
     Route: 048

REACTIONS (2)
  - Syncope [Recovered/Resolved]
  - Ventricular tachycardia [Recovered/Resolved]
